FAERS Safety Report 15076151 (Version 1)
Quarter: 2018Q2

REPORT INFORMATION
  Report Type: Spontaneous
  Country: US (occurrence: US)
  Receive Date: 20180627
  Receipt Date: 20180627
  Transmission Date: 20180711
  Serious: Yes (Hospitalization, Other)
  Sender: FDA-Public Use
  Company Number: US-AMGEN-USASP2018083822

PATIENT
  Sex: Female

DRUGS (3)
  1. XGEVA [Suspect]
     Active Substance: DENOSUMAB
     Indication: BREAST CANCER
  2. LOSARTAN. [Concomitant]
     Active Substance: LOSARTAN
     Dosage: UNK
  3. XGEVA [Suspect]
     Active Substance: DENOSUMAB
     Indication: METASTASES TO BONE
     Dosage: UNK UNK, Q3MO
     Route: 065
     Dates: start: 201703

REACTIONS (5)
  - Unevaluable event [Unknown]
  - Pneumothorax [Unknown]
  - Feeling abnormal [Unknown]
  - Breast cancer [Unknown]
  - Back pain [Unknown]

NARRATIVE: CASE EVENT DATE: 201804
